FAERS Safety Report 10592748 (Version 1)
Quarter: 2014Q4

REPORT INFORMATION
  Report Type: Spontaneous
  Country: DE (occurrence: DE)
  Receive Date: 20141119
  Receipt Date: 20141119
  Transmission Date: 20150529
  Serious: Yes (Congenital Anomaly, Other)
  Sender: FDA-Public Use
  Company Number: DE-PFIZER INC-2014315107

PATIENT

DRUGS (2)
  1. VALPROATE [Suspect]
     Active Substance: VALPROATE SODIUM
     Indication: BIPOLAR DISORDER
     Dosage: UNK
     Route: 064
     Dates: start: 20140201, end: 20140315
  2. VENLAFAXINE HCL [Suspect]
     Active Substance: VENLAFAXINE HYDROCHLORIDE
     Indication: BIPOLAR DISORDER
     Dosage: UNK
     Route: 064
     Dates: start: 20140201, end: 20140315

REACTIONS (3)
  - Maternal exposure during pregnancy [Unknown]
  - Hydrocephalus [Not Recovered/Not Resolved]
  - Meningomyelocele [Not Recovered/Not Resolved]
